FAERS Safety Report 5103563-6 (Version None)
Quarter: 2006Q3

REPORT INFORMATION
  Report Type: 
  Country: None (occurrence: None)
  Receive Date: 20060913
  Receipt Date: 20060906
  Transmission Date: 20061208
  Serious: Yes (Disabling)
  Sender: FDA-Public Use
  Company Number: US-ROCHE-462420

PATIENT
  Age: 50 Year
  Sex: Male

DRUGS (1)
  1. KYTRIL [Suspect]
     Route: 065

REACTIONS (1)
  - BLINDNESS UNILATERAL [None]
